FAERS Safety Report 15237295 (Version 1)
Quarter: 2018Q3

REPORT INFORMATION
  Report Type: Other
  Country: IT (occurrence: IT)
  Receive Date: 20180803
  Receipt Date: 20180803
  Transmission Date: 20181010
  Serious: Yes (Other)
  Sender: FDA-Public Use
  Company Number: IT-ASPEN-GLO2018IT007644

PATIENT

DRUGS (2)
  1. BUSULFAN. [Suspect]
     Active Substance: BUSULFAN
     Indication: ESSENTIAL THROMBOCYTHAEMIA
     Dosage: DOSE DE?ESCALATION EVERY FOUR WEEKS
     Route: 065
  2. HYDROXYCARBAMIDE [Concomitant]
     Active Substance: HYDROXYUREA
     Indication: ESSENTIAL THROMBOCYTHAEMIA
     Route: 065

REACTIONS (1)
  - Anaemia [Unknown]
